FAERS Safety Report 6712617-X (Version None)
Quarter: 2010Q2

REPORT INFORMATION
  Report Type: 
  Country: None (occurrence: None)
  Receive Date: 20100506
  Receipt Date: 20100426
  Transmission Date: 20101027
  Serious: No
  Sender: FDA-Public Use
  Company Number: US-JNJFOC-20091203894

PATIENT
  Sex: Female
  Weight: 79.38 kg

DRUGS (10)
  1. FENTANYL CITRATE [Suspect]
     Indication: MUSCULOSKELETAL PAIN
     Route: 062
  2. FENTANYL CITRATE [Suspect]
     Indication: PAIN IN EXTREMITY
     Route: 062
  3. MORPHINE [Concomitant]
     Indication: BREAKTHROUGH PAIN
     Dosage: EVERY 6-8 HOURS
     Route: 048
  4. CLONAZEPAM [Concomitant]
     Indication: PANIC DISORDER
     Route: 048
  5. CLONAZEPAM [Concomitant]
     Indication: ANXIETY
     Route: 048
  6. BACLOFEN [Concomitant]
     Indication: MUSCLE SPASMS
     Route: 048
  7. SALSALATE [Concomitant]
     Indication: ARTHRALGIA
     Route: 048
  8. CRESTOR [Concomitant]
     Indication: BLOOD CHOLESTEROL INCREASED
     Route: 048
  9. ESTROGENS [Concomitant]
     Indication: HOT FLUSH
     Route: 048
  10. OMEPRAZOLE [Concomitant]
     Indication: GASTROOESOPHAGEAL REFLUX DISEASE
     Dosage: 1 CAPSULE 1/2 HOURS BEFORE BREAKFAST
     Route: 048

REACTIONS (3)
  - APPLICATION SITE REACTION [None]
  - INSOMNIA [None]
  - WRONG TECHNIQUE IN DRUG USAGE PROCESS [None]
